FAERS Safety Report 4693893-4 (Version None)
Quarter: 2005Q2

REPORT INFORMATION
  Report Type: 
  Country: None (occurrence: None)
  Receive Date: 20050616
  Receipt Date: 20050530
  Transmission Date: 20051028
  Serious: Yes (Other)
  Sender: FDA-Public Use
  Company Number: EWC050644398

PATIENT
  Age: 61 Year
  Sex: Female

DRUGS (4)
  1. EVISTA [Suspect]
     Indication: OSTEOPOROSIS
     Dosage: 60 MG/1 DAY
  2. LEVOTHYROXINE SODIUM [Concomitant]
  3. CALCIUM CARBONATE W/CALCIUM GLUCONATE [Concomitant]
  4. CHLORDIAZEPOXIDE W/CLIDNINIUM BROMIDE [Concomitant]

REACTIONS (2)
  - DRUG INTERACTION [None]
  - TACHYCARDIA [None]
